FAERS Safety Report 9059045 (Version 1)
Quarter: 2013Q1

REPORT INFORMATION
  Report Type: Spontaneous
  Country: US (occurrence: US)
  Receive Date: 20130211
  Receipt Date: 20130211
  Transmission Date: 20140127
  Serious: No
  Sender: FDA-Public Use
  Company Number: US-BRISTOL-MYERS SQUIBB COMPANY-16646697

PATIENT
  Age: 85 Year
  Sex: Male

DRUGS (3)
  1. METFORMIN HCL [Suspect]
     Dates: start: 20120308, end: 2012
  2. GLIMEPIRIDE [Suspect]
     Dates: end: 2012
  3. LANTUS [Suspect]
     Indication: TYPE 2 DIABETES MELLITUS
     Dosage: 1DF=15 UNITS?08MAR12-APR12,15UNITS?APR12-ONG,20 UNITS?INJ (100 IU/ML)
     Route: 058
     Dates: start: 20120308

REACTIONS (2)
  - Infection [Unknown]
  - Blood glucose increased [Unknown]
